FAERS Safety Report 15900766 (Version 1)
Quarter: 2019Q1

REPORT INFORMATION
  Report Type: Spontaneous
  Country: GB (occurrence: GB)
  Receive Date: 20190201
  Receipt Date: 20190201
  Transmission Date: 20190417
  Serious: Yes (Hospitalization)
  Sender: FDA-Public Use
  Company Number: GB-ASTRAZENECA-2019SE14793

PATIENT
  Age: 54 Year
  Sex: Female

DRUGS (18)
  1. MOXONIDINE [Concomitant]
     Active Substance: MOXONIDINE
     Dosage: 300UG/INHAL
  2. PRAZOSIN. [Concomitant]
     Active Substance: PRAZOSIN
     Dosage: 500UG/INHAL
  3. DULOXETINE. [Concomitant]
     Active Substance: DULOXETINE
  4. PREGABALIN. [Concomitant]
     Active Substance: PREGABALIN
  5. LOSARTAN. [Concomitant]
     Active Substance: LOSARTAN
     Dosage: MORNING
  6. METFORMIN [Concomitant]
     Active Substance: METFORMIN HYDROCHLORIDE
  7. LANSOPRAZOLE. [Concomitant]
     Active Substance: LANSOPRAZOLE
  8. GAVISCON ADVANCE [Concomitant]
     Active Substance: POTASSIUM BICARBONATE\SODIUM ALGINATE
  9. ALVERINE CITRATE [Concomitant]
     Active Substance: ALVERINE CITRATE
  10. BISACODYL. [Concomitant]
     Active Substance: BISACODYL
     Dosage: 5-20MG ONCE A DAY
  11. TRAMADOL. [Concomitant]
     Active Substance: TRAMADOL
     Dosage: 50-100MG FOUR TIMES DAILY
  12. DAPAGLIFLOZIN. [Suspect]
     Active Substance: DAPAGLIFLOZIN
     Indication: TYPE 2 DIABETES MELLITUS
     Route: 048
  13. ESTRADOT [Concomitant]
     Active Substance: ESTRADIOL
     Dosage: 10UG/INHAL
  14. BENDROFLUMETHIAZIDE [Concomitant]
     Active Substance: BENDROFLUMETHIAZIDE
  15. HUMALOG [Concomitant]
     Active Substance: INSULIN LISPRO
     Dosage: AS PER CARB COUNTING
  16. SIMVASTATIN. [Concomitant]
     Active Substance: SIMVASTATIN
  17. DOCUSATE [Concomitant]
     Active Substance: DOCUSATE
  18. TOUJEO [Concomitant]
     Active Substance: INSULIN GLARGINE

REACTIONS (3)
  - Diarrhoea [Unknown]
  - Diabetic ketoacidosis [Recovered/Resolved]
  - Malaise [Unknown]

NARRATIVE: CASE EVENT DATE: 20190109
